FAERS Safety Report 5796346-5 (Version None)
Quarter: 2008Q2

REPORT INFORMATION
  Report Type: 
  Country: None (occurrence: None)
  Receive Date: 20080630
  Receipt Date: 20080630
  Transmission Date: 20081010
  Serious: Yes (Life-Threatening, Hospitalization, Other)
  Sender: FDA-Public Use
  Company Number: None

PATIENT
  Age: 9 Year
  Sex: Female
  Weight: 42 kg

DRUGS (1)
  1. PREDNISONE TAB [Suspect]
     Indication: DERMATOMYOSITIS
     Dosage: 5MGS - 10MGS EVERY SECOND DAY
     Dates: start: 19850823, end: 19850925

REACTIONS (29)
  - ABDOMINAL DISTENSION [None]
  - AREFLEXIA [None]
  - ASTHENIA [None]
  - DEHYDRATION [None]
  - DEPRESSED LEVEL OF CONSCIOUSNESS [None]
  - DISTURBANCE IN ATTENTION [None]
  - DYSPHAGIA [None]
  - DYSSTASIA [None]
  - FATIGUE [None]
  - GAIT DISTURBANCE [None]
  - HAIR TEXTURE ABNORMAL [None]
  - HYPOVITAMINOSIS [None]
  - IMPAIRED HEALING [None]
  - INFLAMMATION [None]
  - INSOMNIA [None]
  - MASS [None]
  - MOVEMENT DISORDER [None]
  - MUSCLE SPASMS [None]
  - MUSCULOSKELETAL STIFFNESS [None]
  - POLLAKIURIA [None]
  - PREMATURE AGEING [None]
  - PYREXIA [None]
  - RESPIRATORY DISORDER [None]
  - SKIN DISORDER [None]
  - SKIN ULCER [None]
  - STRESS [None]
  - THIRST [None]
  - UNDERWEIGHT [None]
  - VISUAL ACUITY REDUCED [None]
